FAERS Safety Report 24577117 (Version 1)
Quarter: 2024Q4

REPORT INFORMATION
  Report Type: Report from Study
  Country: JP (occurrence: JP)
  Receive Date: 20241104
  Receipt Date: 20241104
  Transmission Date: 20250115
  Serious: Yes (Other)
  Sender: ALEXION PHARMACEUTICALS
  Company Number: JP-ASTRAZENECA-240014339_011820_P_1

PATIENT
  Age: 5 Year

DRUGS (5)
  1. KOSELUGO [Suspect]
     Active Substance: SELUMETINIB
     Indication: Neurofibroma
     Dosage: 20 MILLIGRAM, BID
  2. KOSELUGO [Suspect]
     Active Substance: SELUMETINIB
     Dosage: 30 MILLIGRAM
  3. KOSELUGO [Suspect]
     Active Substance: SELUMETINIB
     Dosage: 20 MILLIGRAM, BID
  4. KOSELUGO [Suspect]
     Active Substance: SELUMETINIB
     Dosage: 20 MILLIGRAM, QD
  5. KOSELUGO [Suspect]
     Active Substance: SELUMETINIB
     Dosage: 30 MILLIGRAM

REACTIONS (3)
  - Blood creatine phosphokinase increased [Recovered/Resolved]
  - Alopecia [Recovered/Resolved]
  - Folliculitis [Recovered/Resolved]
